FAERS Safety Report 4673924-8 (Version None)
Quarter: 2005Q2

REPORT INFORMATION
  Report Type: 
  Country: None (occurrence: None)
  Receive Date: 20050524
  Receipt Date: 20050510
  Transmission Date: 20051028
  Serious: No
  Sender: FDA-Public Use
  Company Number: GBS050517367

PATIENT
  Age: 37 Year
  Sex: Female
  Weight: 63 kg

DRUGS (3)
  1. OLANZAPINE [Suspect]
     Indication: DEPRESSION
     Dosage: 5 MG
     Dates: start: 20040310, end: 20050415
  2. PERPHENAZINE [Concomitant]
  3. VENLAFAXINE HCL [Concomitant]

REACTIONS (1)
  - NEUTROPHIL COUNT INCREASED [None]
